FAERS Safety Report 21049183 (Version 2)
Quarter: 2022Q3

REPORT INFORMATION
  Report Type: Report from Study
  Country: GB (occurrence: GB)
  Receive Date: 20220706
  Receipt Date: 20220714
  Transmission Date: 20221027
  Serious: Yes (Hospitalization, Other)
  Sender: FDA-Public Use
  Company Number: GB-MHRA-MED-202206270913157670-NBWGC

PATIENT

DRUGS (1)
  1. IBUPROFEN [Suspect]
     Active Substance: IBUPROFEN
     Indication: Overdose
     Route: 065

REACTIONS (5)
  - Medication error [Unknown]
  - Duodenal ulcer [Recovering/Resolving]
  - Abdominal pain [Unknown]
  - Faeces discoloured [Unknown]
  - Overdose [Unknown]

NARRATIVE: CASE EVENT DATE: 20220609
